FAERS Safety Report 21755990 (Version 1)
Quarter: 2022Q4

REPORT INFORMATION
  Report Type: Spontaneous
  Country: US (occurrence: US)
  Receive Date: 20221220
  Receipt Date: 20221220
  Transmission Date: 20230113
  Serious: Yes (Hospitalization)
  Sender: FDA-Public Use
  Company Number: US-BAYER-2022P029664

PATIENT
  Age: 71 Year
  Sex: Female

DRUGS (5)
  1. ADEMPAS [Suspect]
     Active Substance: RIOCIGUAT
  2. MACITENTAN [Suspect]
     Active Substance: MACITENTAN
     Indication: Pulmonary arterial hypertension
  3. SELEXIPAG [Suspect]
     Active Substance: SELEXIPAG
     Dosage: 3200 MCG
     Route: 048
  4. SELEXIPAG [Suspect]
     Active Substance: SELEXIPAG
     Dosage: 1600 UG 1 TIME EVERY 5 DAYS
     Route: 048
     Dates: start: 20211202, end: 20211227
  5. SELEXIPAG [Suspect]
     Active Substance: SELEXIPAG
     Dosage: 1600 UG 1 TIME EVERY 5 DAYS
     Route: 048
     Dates: start: 202203

REACTIONS (4)
  - Pneumonia [None]
  - Headache [Recovered/Resolved]
  - Nausea [Recovered/Resolved]
  - Abdominal discomfort [None]
